FAERS Safety Report 14021896 (Version 1)
Quarter: 2017Q3

REPORT INFORMATION
  Report Type: Spontaneous
  Country: US (occurrence: US)
  Receive Date: 20170928
  Receipt Date: 20170928
  Transmission Date: 20171128
  Serious: Yes (Other)
  Sender: FDA-Public Use
  Company Number: US-BRACCO-005002

PATIENT
  Age: 45 Year
  Sex: Female

DRUGS (25)
  1. EPOGEN [Concomitant]
     Active Substance: ERYTHROPOIETIN
  2. PREDNISONE. [Concomitant]
     Active Substance: PREDNISONE
  3. GENTAMYCIN                         /00047101/ [Concomitant]
     Active Substance: GENTAMICIN
  4. MULTIHANCE [Suspect]
     Active Substance: GADOBENATE DIMEGLUMINE
     Indication: NUCLEAR MAGNETIC RESONANCE IMAGING
     Dosage: 20 ML, UNK
     Dates: start: 20060202, end: 20060202
  5. PROHANCE [Suspect]
     Active Substance: GADOTERIDOL
     Indication: NUCLEAR MAGNETIC RESONANCE IMAGING
     Dosage: UNK
     Dates: start: 20060720, end: 20060720
  6. NEURONTIN [Concomitant]
     Active Substance: GABAPENTIN
  7. ARANESP [Concomitant]
     Active Substance: DARBEPOETIN ALFA
  8. PROAMATINE [Concomitant]
     Active Substance: MIDODRINE HYDROCHLORIDE
  9. MAGNEVIST [Suspect]
     Active Substance: GADOPENTETATE DIMEGLUMINE
     Indication: DIAGNOSTIC PROCEDURE
     Dosage: 30 ML, SINGLE
     Dates: start: 20040726, end: 20040726
  10. COUMADINE [Concomitant]
     Active Substance: WARFARIN SODIUM
     Dosage: UNK
  11. SOLU-CORTEF [Concomitant]
     Active Substance: HYDROCORTISONE SODIUM SUCCINATE
  12. VANCOMYCIN [Concomitant]
     Active Substance: VANCOMYCIN
  13. RENAGEL [Concomitant]
     Active Substance: SEVELAMER HYDROCHLORIDE
  14. CARDIZEM [Concomitant]
     Active Substance: DILTIAZEM HYDROCHLORIDE
  15. PROHANCE [Suspect]
     Active Substance: GADOTERIDOL
     Indication: NUCLEAR MAGNETIC RESONANCE IMAGING
     Dosage: UNK
     Dates: start: 20070925, end: 20070925
  16. VENOFER [Concomitant]
     Active Substance: IRON SUCROSE
  17. RENAPHRO [Concomitant]
  18. MAGNEVIST [Suspect]
     Active Substance: GADOPENTETATE DIMEGLUMINE
     Indication: DIAGNOSTIC PROCEDURE
     Dosage: 28 ML, SINGLE
     Dates: start: 20041220, end: 20041220
  19. HEPARIN [Concomitant]
     Active Substance: HEPARIN SODIUM
  20. PHOSLO [Concomitant]
     Active Substance: CALCIUM ACETATE
  21. LEVOCARNITINE. [Concomitant]
     Active Substance: LEVOCARNITINE
  22. MAGNEVIST [Suspect]
     Active Substance: GADOPENTETATE DIMEGLUMINE
     Indication: DIAGNOSTIC PROCEDURE
     Dosage: 30 ML, SINGLE
     Dates: start: 20050404, end: 20050404
  23. PLAQUENIL                          /00072602/ [Concomitant]
     Active Substance: HYDROXYCHLOROQUINE DIPHOSPHATE
  24. NEPHROCAPS                         /01801401/ [Concomitant]
  25. LOPRESSOR [Concomitant]
     Active Substance: METOPROLOL TARTRATE

REACTIONS (1)
  - Nephrogenic systemic fibrosis [Not Recovered/Not Resolved]

NARRATIVE: CASE EVENT DATE: 200704
